FAERS Safety Report 9078667 (Version 3)
Quarter: 2013Q2

REPORT INFORMATION
  Report Type: Report from Study
  Country: US (occurrence: US)
  Receive Date: 20130130
  Receipt Date: 20130523
  Transmission Date: 20140414
  Serious: Yes (Other)
  Sender: FDA-Public Use
  Company Number: US-ABBOTT-12P-163-0958619-00

PATIENT
  Age: 56 Year
  Sex: Female
  Weight: 56.3 kg

DRUGS (11)
  1. HUMIRA 40 MG/0.8 ML PEN [Suspect]
     Indication: RHEUMATOID ARTHRITIS
     Route: 058
     Dates: start: 200702, end: 201302
  2. HUMIRA 40 MG/0.8 ML PEN [Suspect]
     Route: 058
     Dates: start: 201304
  3. ETODOLAC [Concomitant]
     Indication: ANTIINFLAMMATORY THERAPY
  4. PLAQUENIL [Concomitant]
     Indication: PRODUCT USED FOR UNKNOWN INDICATION
     Dosage: 2 TABLETS 1 DAY, 1 TABLET THE NEXT DAY
  5. METHOTREXATE [Concomitant]
     Indication: PRODUCT USED FOR UNKNOWN INDICATION
  6. FOLIC ACID [Concomitant]
     Indication: PRODUCT USED FOR UNKNOWN INDICATION
  7. ACCURETIC [Concomitant]
     Indication: HYPERTENSION
     Dosage: 10-12.5 MG DAILY
  8. SYNTHROID [Concomitant]
     Indication: HYPOTHYROIDISM
  9. ARAVA [Concomitant]
     Indication: PRODUCT USED FOR UNKNOWN INDICATION
  10. PREDNISONE [Concomitant]
     Indication: PRODUCT USED FOR UNKNOWN INDICATION
     Dosage: 5MG EVEN DAYS, 4MG ODD DAYS OF WEEK
  11. PRILOSEC [Concomitant]
     Indication: PROPHYLAXIS

REACTIONS (22)
  - Spinal osteoarthritis [Recovered/Resolved]
  - Device related infection [Recovered/Resolved]
  - Abscess jaw [Recovered/Resolved]
  - Pain in jaw [Recovered/Resolved]
  - Weight decreased [Recovered/Resolved]
  - Gastroenteritis viral [Recovered/Resolved]
  - Vomiting [Recovered/Resolved]
  - Red blood cell sedimentation rate increased [Recovered/Resolved]
  - Pain in extremity [Recovering/Resolving]
  - Arthralgia [Unknown]
  - Infection [Recovering/Resolving]
  - Pyrexia [Recovering/Resolving]
  - Chills [Recovering/Resolving]
  - Diarrhoea [Recovering/Resolving]
  - Haemorrhage [Recovering/Resolving]
  - Purulent discharge [Recovering/Resolving]
  - Haemorrhage [Unknown]
  - Skin discolouration [Recovering/Resolving]
  - Nodule [Unknown]
  - Injection site pain [Unknown]
  - Musculoskeletal discomfort [Unknown]
  - Drug ineffective [Unknown]
